FAERS Safety Report 4710089-8 (Version None)
Quarter: 2005Q3

REPORT INFORMATION
  Report Type: 
  Country: None (occurrence: None)
  Receive Date: 20050706
  Receipt Date: 20050706
  Transmission Date: 20060218
  Serious: Yes (Death, Hospitalization)
  Sender: FDA-Public Use
  Company Number: None

PATIENT
  Age: 78 Year
  Sex: Male
  Weight: 112.4921 kg

DRUGS (7)
  1. TAXOL [Suspect]
     Indication: PROSTATE CANCER METASTATIC
     Dosage: 297 MG, 1X, IV
     Route: 042
     Dates: start: 20050526, end: 20050526
  2. ASPIRIN [Concomitant]
  3. ATENOLOL [Concomitant]
  4. CIPRO [Concomitant]
  5. CLOPIDOGREL BISULFATE [Concomitant]
  6. OXYBUTYIN [Concomitant]
  7. ZOCOR [Concomitant]

REACTIONS (9)
  - ASPIRATION [None]
  - GASTROINTESTINAL HAEMORRHAGE [None]
  - GENERAL PHYSICAL HEALTH DETERIORATION [None]
  - LOSS OF CONSCIOUSNESS [None]
  - MALIGNANT NEOPLASM PROGRESSION [None]
  - PLEURAL EFFUSION [None]
  - POST PROCEDURAL DIARRHOEA [None]
  - POST PROCEDURAL NAUSEA [None]
  - POST PROCEDURAL VOMITING [None]
